FAERS Safety Report 4900637-7 (Version None)
Quarter: 2006Q1

REPORT INFORMATION
  Report Type: 
  Country: None (occurrence: None)
  Receive Date: 20060201
  Receipt Date: 20060117
  Transmission Date: 20060701
  Serious: Yes (Hospitalization, Other)
  Sender: FDA-Public Use
  Company Number: US200601002891

PATIENT
  Age: 44 Year
  Sex: Male

DRUGS (1)
  1. HUMATROPE [Suspect]
     Indication: BONE DENSITY DECREASED
     Dosage: 60 U, DAILY (1/D)
     Dates: start: 20030101

REACTIONS (18)
  - ANKLE FRACTURE [None]
  - CEREBROVASCULAR ACCIDENT [None]
  - CONDITION AGGRAVATED [None]
  - CONTUSION [None]
  - DEPRESSION [None]
  - DYSSTASIA [None]
  - EYE INJURY [None]
  - FACE INJURY [None]
  - FALL [None]
  - FOOT FRACTURE [None]
  - HAND FRACTURE [None]
  - HEAD INJURY [None]
  - OBSESSIVE-COMPULSIVE DISORDER [None]
  - PARANOIA [None]
  - PERIORBITAL HAEMATOMA [None]
  - PHARMACEUTICAL PRODUCT COMPLAINT [None]
  - WRIST FRACTURE [None]
  - WRONG TECHNIQUE IN DRUG USAGE PROCESS [None]
